FAERS Safety Report 5244761-0 (Version None)
Quarter: 2007Q1

REPORT INFORMATION
  Report Type: 
  Country: None (occurrence: None)
  Receive Date: 20061201
  Receipt Date: 20060802
  Transmission Date: 20070707
  Serious: No
  Sender: FDA-Public Use
  Company Number: 2006PV018731

PATIENT
  Age: 39 Year
  Sex: Female
  Weight: 87.9978 kg

DRUGS (3)
  1. BYETTA [Suspect]
     Indication: DIABETES MELLITUS NON-INSULIN-DEPENDENT
     Dosage: SEE IMAGE
     Route: 058
     Dates: start: 20060401, end: 20060501
  2. BYETTA [Suspect]
     Indication: DIABETES MELLITUS NON-INSULIN-DEPENDENT
     Dosage: SEE IMAGE
     Route: 058
     Dates: start: 20060601
  3. IMODIUM [Suspect]
     Indication: DIARRHOEA
     Dates: start: 20060101

REACTIONS (5)
  - ABDOMINAL DISTENSION [None]
  - CONSTIPATION [None]
  - DIARRHOEA [None]
  - FLATULENCE [None]
  - WEIGHT DECREASED [None]
